FAERS Safety Report 4437481-3 (Version None)
Quarter: 2004Q3

REPORT INFORMATION
  Report Type: 
  Country: None (occurrence: None)
  Receive Date: 20040830
  Receipt Date: 20040830
  Transmission Date: 20050211
  Serious: Yes (Death)
  Sender: FDA-Public Use
  Company Number: None

PATIENT
  Age: 69 Year
  Sex: Female
  Weight: 68.4 kg

DRUGS (3)
  1. HEPARIN [Suspect]
     Indication: CATHETERISATION CARDIAC
     Dosage: X1 DOSE 12:07
     Route: 042
  2. HEPARIN [Suspect]
     Indication: CORONARY ARTERY DISEASE
     Dosage: X1 DOSE 12:07
     Route: 042
  3. INTEGRILIN [Suspect]
     Dosage: INTEGRILIN STOPPED 13:37

REACTIONS (5)
  - CARDIOGENIC SHOCK [None]
  - HYPOTENSION [None]
  - INJECTION SITE HAEMORRHAGE [None]
  - POST PROCEDURAL COMPLICATION [None]
  - RETROPERITONEAL HAEMORRHAGE [None]
